FAERS Safety Report 17739827 (Version 1)
Quarter: 2020Q2

REPORT INFORMATION
  Report Type: Spontaneous
  Country: US (occurrence: US)
  Receive Date: 20200501
  Receipt Date: 20200501
  Transmission Date: 20200714
  Serious: Yes (Hospitalization)
  Sender: FDA-Public Use
  Company Number: None

PATIENT
  Sex: Female

DRUGS (1)
  1. ADAKVEO [Suspect]
     Active Substance: CRIZANLIZUMAB-TMCA
     Dosage: ?          OTHER FREQUENCY:EVERY4WEEKS ;?
     Route: 042
     Dates: start: 20200305

REACTIONS (4)
  - Back pain [None]
  - Feeling cold [None]
  - Vascular occlusion [None]
  - Therapy interrupted [None]
